FAERS Safety Report 4863350-0 (Version None)
Quarter: 2005Q4

REPORT INFORMATION
  Report Type: 
  Country: None (occurrence: None)
  Receive Date: 20051222
  Receipt Date: 20051212
  Transmission Date: 20060501
  Serious: Yes (Death, Life-Threatening, Other)
  Sender: FDA-Public Use
  Company Number: VE-ABBOTT-05P-178-0319446-00

PATIENT
  Age: 29 Year
  Sex: Female
  Weight: 35.5 kg

DRUGS (1)
  1. ZEMPLAR [Suspect]
     Indication: HYPERPARATHYROIDISM SECONDARY
     Route: 042
     Dates: start: 20051123, end: 20051125

REACTIONS (10)
  - ARRHYTHMIA [None]
  - CARDIAC ARREST [None]
  - DIARRHOEA [None]
  - HAEMODIALYSIS [None]
  - HAEMOPTYSIS [None]
  - HYPOTENSION [None]
  - JAUNDICE [None]
  - PYREXIA [None]
  - SEPSIS [None]
  - SEPTIC SHOCK [None]
